FAERS Safety Report 4766823-4 (Version None)
Quarter: 2005Q3

REPORT INFORMATION
  Report Type: 
  Country: None (occurrence: None)
  Receive Date: 20050908
  Receipt Date: 20050829
  Transmission Date: 20060218
  Serious: Yes (Hospitalization, Other)
  Sender: FDA-Public Use
  Company Number: US-2005-011752

PATIENT
  Age: 40 Year
  Sex: Female
  Weight: 71 kg

DRUGS (3)
  1. CAMPATH [Suspect]
     Indication: PANCREAS TRANSPLANT
     Dosage: 30 MG, INTRAVENOUS
     Route: 042
     Dates: start: 20040207, end: 20040214
  2. THYMOLGLOBULINE    /NET/(ANTITYMOCYTE IMMUNOGLOBULIN (RABIT)) [Suspect]
  3. CORTICOSTEROIDS [Concomitant]

REACTIONS (6)
  - ANAEMIA HAEMOLYTIC AUTOIMMUNE [None]
  - CYTOMEGALOVIRUS INFECTION [None]
  - LOCALISED INFECTION [None]
  - PANCREAS TRANSPLANT REJECTION [None]
  - RASH [None]
  - SOFT TISSUE INFECTION [None]
